FAERS Safety Report 15994672 (Version 1)
Quarter: 2019Q1

REPORT INFORMATION
  Report Type: Spontaneous
  Country: US (occurrence: US)
  Receive Date: 20190222
  Receipt Date: 20190222
  Transmission Date: 20190418
  Serious: Yes (Death, Other)
  Sender: FDA-Public Use
  Company Number: PHEH2019US008172

PATIENT
  Sex: Female

DRUGS (1)
  1. TASIGNA [Suspect]
     Active Substance: NILOTINIB
     Indication: CHRONIC MYELOID LEUKAEMIA
     Dosage: 200 MG, BID
     Route: 048
     Dates: start: 200802

REACTIONS (15)
  - Gangrene [Unknown]
  - Pleural effusion [Unknown]
  - Peripheral swelling [Unknown]
  - Sinus rhythm [Unknown]
  - Dyspnoea [Unknown]
  - Cholecystitis [Unknown]
  - Obesity [Unknown]
  - Ulcer [Unknown]
  - Bronchitis [Unknown]
  - Confusional state [Unknown]
  - Fatigue [Unknown]
  - Death [Fatal]
  - Atrial fibrillation [Unknown]
  - Hyperkalaemia [Unknown]
  - Abdominal pain [Unknown]
